FAERS Safety Report 7921598-2 (Version None)
Quarter: 2011Q4

REPORT INFORMATION
  Report Type: 
  Country: None (occurrence: None)
  Receive Date: 20111117
  Receipt Date: 20111109
  Transmission Date: 20120403
  Serious: Yes (Other)
  Sender: FDA-Public Use
  Company Number: US-BAYER-2011-038672

PATIENT
  Sex: Female

DRUGS (34)
  1. GADOLINIUM IN UNSPECIFIED DRUG [Suspect]
     Indication: NUCLEAR MAGNETIC RESONANCE IMAGING
  2. GADOLINIUM IN UNSPECIFIED DRUG [Suspect]
     Indication: NUCLEAR MAGNETIC RESONANCE IMAGING ABDOMINAL
  3. GANCICLOVIR [Concomitant]
  4. AMIODARONE HCL [Concomitant]
  5. PROCRIT [Concomitant]
  6. ALLOPURINOL [Concomitant]
  7. NEXIUM [Concomitant]
  8. LAMICTAL [Concomitant]
  9. LEVOXYL [Concomitant]
  10. PREDNISONE TAB [Concomitant]
  11. AMIODARONE HCL [Concomitant]
  12. ROCALTROL [Concomitant]
  13. CLONIDINE [Concomitant]
  14. PLAVIX [Concomitant]
  15. GADOLINIUM IN UNSPECIFIED DRUG [Suspect]
     Indication: NUCLEAR MAGNETIC RESONANCE IMAGING BRAIN
     Dosage: UNK
     Dates: start: 20020717, end: 20020717
  16. PREDNISONE TAB [Concomitant]
  17. DAPSONE [Concomitant]
  18. FUROSEMIDE [Concomitant]
  19. MAGNEVIST [Suspect]
     Indication: VENOGRAM
  20. RENAGEL [Concomitant]
  21. CYTOVENE [Concomitant]
  22. PROGRAF [Concomitant]
  23. DAPSONE [Concomitant]
  24. CARDIZEM [Concomitant]
  25. MAGNEVIST [Suspect]
     Indication: ANGIOGRAM
     Dosage: UNK
     Dates: start: 20040517, end: 20040517
  26. MAGNEVIST [Suspect]
  27. NEURONTIN [Concomitant]
  28. ATENOLOL [Concomitant]
  29. CARDURA [Concomitant]
  30. EPOGEN [Concomitant]
  31. MAGNEVIST [Suspect]
     Indication: NUCLEAR MAGNETIC RESONANCE IMAGING
     Dosage: UNK
     Dates: start: 20040405, end: 20040405
  32. PROGRAF [Concomitant]
  33. COLCHICINE [Concomitant]
  34. HYDRALAZINE HCL [Concomitant]

REACTIONS (20)
  - OEDEMA PERIPHERAL [None]
  - SKIN HYPOPIGMENTATION [None]
  - PAIN IN EXTREMITY [None]
  - MUSCULAR WEAKNESS [None]
  - ARTHRALGIA [None]
  - SKIN DISCOLOURATION [None]
  - DRY SKIN [None]
  - SKIN HYPERTROPHY [None]
  - BONE PAIN [None]
  - SKIN INDURATION [None]
  - SKIN DISORDER [None]
  - OEDEMA [None]
  - RASH PAPULAR [None]
  - RASH ERYTHEMATOUS [None]
  - SKIN TIGHTNESS [None]
  - NEPHROGENIC SYSTEMIC FIBROSIS [None]
  - PARAESTHESIA [None]
  - SKIN PLAQUE [None]
  - SKIN SWELLING [None]
  - SKIN HYPERPIGMENTATION [None]
